FAERS Safety Report 10173342 (Version 2)
Quarter: 2014Q2

REPORT INFORMATION
  Report Type: Spontaneous
  Country: AU (occurrence: AU)
  Receive Date: 20140515
  Receipt Date: 20140515
  Transmission Date: 20141212
  Serious: Yes (Hospitalization)
  Sender: FDA-Public Use
  Company Number: AU-BAXTER-2014BAX021426

PATIENT
  Sex: Female

DRUGS (2)
  1. SODIUM CHLORIDE (0.22%) AND GLUCOSE (10%) INTRAVENOUS INFUSION BP SOLU [Suspect]
     Indication: BREAST CANCER
     Route: 042
  2. DOCETAXEL [Suspect]
     Indication: BREAST CANCER
     Route: 065

REACTIONS (1)
  - Neutropenia [Unknown]
